FAERS Safety Report 9444646 (Version 2)
Quarter: 2013Q3

REPORT INFORMATION
  Report Type: Spontaneous
  Country: US (occurrence: US)
  Receive Date: 20130807
  Receipt Date: 20130930
  Transmission Date: 20140515
  Serious: Yes (Death, Hospitalization, Congenital Anomaly, Other)
  Sender: FDA-Public Use
  Company Number: US-PFIZER INC-2013227339

PATIENT
  Sex: Male

DRUGS (3)
  1. ZOLOFT [Suspect]
     Indication: DEPRESSION
     Dosage: UNK
     Route: 064
     Dates: start: 2004
  2. PRENATAL VITAMINS [Concomitant]
     Dosage: UNK
     Route: 064
  3. ALBUTEROL [Concomitant]
     Dosage: UNK
     Route: 064

REACTIONS (6)
  - Maternal exposure during pregnancy [Fatal]
  - Heart disease congenital [Fatal]
  - Neonatal respiratory distress syndrome [Fatal]
  - Pulmonary haemorrhage [Fatal]
  - Neonatal respiratory failure [Fatal]
  - Premature baby [Fatal]
